FAERS Safety Report 16421572 (Version 1)
Quarter: 2019Q2

REPORT INFORMATION
  Report Type: Spontaneous
  Country: KR (occurrence: KR)
  Receive Date: 20190612
  Receipt Date: 20190612
  Transmission Date: 20190711
  Serious: Yes (Death, Hospitalization, Other)
  Sender: FDA-Public Use
  Company Number: KR-009507513-1905KOR005270

PATIENT
  Sex: Male

DRUGS (19)
  1. CEFTRIAXONE. [Concomitant]
     Active Substance: CEFTRIAXONE
     Dosage: (BORYUNG) QUANTITY 1
     Dates: start: 20190427, end: 20190502
  2. KEYTRUDA [Suspect]
     Active Substance: PEMBROLIZUMAB
     Dosage: QUANTITY 2, DAYS 1
     Dates: start: 20190523, end: 20190523
  3. ZIPAN (PROMETHAZINE HYDROCHLORIDE) [Concomitant]
     Dosage: CONCENTRATION: 50MG/ML; QUANTITY 1
     Dates: start: 20190427, end: 20190427
  4. MORPHINE HYDROCHLORIDE [Concomitant]
     Active Substance: MORPHINE HYDROCHLORIDE
     Dosage: QUANTITY 1
     Dates: start: 20190427, end: 20190427
  5. SODIUM CHLORIDE. [Concomitant]
     Active Substance: SODIUM CHLORIDE
     Dosage: (JW) CONCENTRATION: 500ML; QUANTITY 1, DAYS 9
     Dates: start: 20190427, end: 20190503
  6. OCODONE [Concomitant]
     Active Substance: OXYCODONE HYDROCHLORIDE
     Dosage: CONCENTRATION 10MG; QUANTITY 1, DAYS 5
     Dates: start: 20190430, end: 20190506
  7. BROPIUM [Concomitant]
     Dosage: QUANTITY 1
     Dates: start: 20190129, end: 20190129
  8. TIROPA (TICLOPIDINE HYDROCHLORIDE) [Concomitant]
     Dosage: QUANTITY 3, DAYS 4
     Dates: start: 20190427, end: 20190429
  9. MIDAZOLAM BUKWANG [Concomitant]
     Dosage: QUANTITY 1
     Dates: start: 20190429, end: 20190429
  10. SODIUM CHLORIDE. [Concomitant]
     Active Substance: SODIUM CHLORIDE
     Dosage: (JW) CONCENTRATION: 100ML; QUANTITY 1, DAYS 12
     Dates: start: 20190427, end: 20190502
  11. THIAMINE HYDROCHLORIDE. [Concomitant]
     Active Substance: THIAMINE HYDROCHLORIDE
     Dosage: (JEIL) QUANTITY 2
     Dates: start: 20190427, end: 20190506
  12. OMAP ONE PERI [Concomitant]
     Dosage: QUANTITY 1
     Dates: start: 20190427, end: 20190427
  13. PETHIDINE HCL HANA [Concomitant]
     Dosage: QUANTITY 1, DAYS 3
     Dates: start: 20190427
  14. ALBUMIN HUMAN [Concomitant]
     Active Substance: ALBUMIN HUMAN
     Dosage: (GREENCROSS) QUANTITY 1, DAYS 5
     Dates: start: 20190427, end: 20190503
  15. LASIX [Concomitant]
     Active Substance: FUROSEMIDE
     Dosage: QUANTITY 1
     Dates: start: 20190428, end: 20190428
  16. KEYTRUDA [Suspect]
     Active Substance: PEMBROLIZUMAB
     Indication: HEPATOBILIARY CANCER
     Dosage: 1ST IMMUNE-CHEMOTHERAPY; QUANTITY 2
     Dates: start: 20190502, end: 20190502
  17. OCODONE [Concomitant]
     Active Substance: OXYCODONE HYDROCHLORIDE
     Dosage: CONCENTRATION 20MG; QUANTITY 2, DAYS 8
     Dates: start: 20190427, end: 20190503
  18. SODIUM CHLORIDE. [Concomitant]
     Active Substance: SODIUM CHLORIDE
     Dosage: (DAIHAN) QUANTITY 1
     Dates: start: 20190429, end: 20190429
  19. CURAN [Concomitant]
     Active Substance: RANITIDINE HYDROCHLORIDE
     Dosage: QUANTITY 1
     Dates: start: 20190427, end: 20190427

REACTIONS (5)
  - Adverse event [Not Recovered/Not Resolved]
  - Product use in unapproved indication [Unknown]
  - Malignant neoplasm progression [Fatal]
  - Adverse event [Unknown]
  - Oxygen therapy [Unknown]

NARRATIVE: CASE EVENT DATE: 2019
